FAERS Safety Report 5282243-0 (Version None)
Quarter: 2007Q1

REPORT INFORMATION
  Report Type: 
  Country: None (occurrence: None)
  Receive Date: 20070330
  Receipt Date: 20070319
  Transmission Date: 20070707
  Serious: Yes (Death, Hospitalization)
  Sender: FDA-Public Use
  Company Number: NL-PFIZER INC-2007022464

PATIENT

DRUGS (9)
  1. SU-011,248 [Suspect]
     Indication: RENAL CELL CARCINOMA STAGE UNSPECIFIED
     Route: 048
     Dates: start: 20060529, end: 20060627
  2. SU-011,248 [Suspect]
     Route: 048
     Dates: start: 20060610, end: 20060808
  3. SU-011,248 [Suspect]
     Route: 048
     Dates: start: 20060822, end: 20060918
  4. OXAZEPAM [Concomitant]
     Route: 048
     Dates: start: 20060507, end: 20061017
  5. VALPROATE SODIUM [Concomitant]
     Route: 048
     Dates: start: 20060502, end: 20061017
  6. MEGACE [Concomitant]
     Route: 048
     Dates: start: 20060612, end: 20061008
  7. CODEINE PHOSPHATE [Concomitant]
     Route: 048
     Dates: start: 20060621, end: 20061010
  8. THYRAX [Concomitant]
     Route: 048
     Dates: start: 20060821, end: 20061017
  9. ESOMEPRAZOLE MAGNESIUM [Concomitant]
     Route: 048
     Dates: start: 20060624, end: 20061008

REACTIONS (2)
  - DEATH [None]
  - PERICARDITIS [None]
